FAERS Safety Report 19102687 (Version 1)
Quarter: 2021Q2

REPORT INFORMATION
  Report Type: Spontaneous
  Country: US (occurrence: US)
  Receive Date: 20210407
  Receipt Date: 20210407
  Transmission Date: 20210717
  Serious: Yes (Hospitalization)
  Sender: FDA-Public Use
  Company Number: None

PATIENT
  Age: 50 Year
  Sex: Female

DRUGS (5)
  1. AMOXICILLIN (AMOXICILLIN) [Suspect]
     Active Substance: AMOXICILLIN
     Indication: ARTHROPOD BITE
  2. LEVOFLOXACIN (LEVOFLOXACIN) [Concomitant]
     Active Substance: LEVOFLOXACIN
  3. CEFTRIAZONE (CEFTRIAXONE SODIUM) [Suspect]
     Active Substance: CEFTRIAXONE SODIUM
     Indication: PRODUCT USED FOR UNKNOWN INDICATION
  4. METRONIDAZOLE (METRONIDAZOLE) [Concomitant]
     Active Substance: METRONIDAZOLE
  5. NOREPINEPHRINE (NOREPINEPHRINE) [Concomitant]

REACTIONS (9)
  - Multiple organ dysfunction syndrome [None]
  - Blood alkaline phosphatase increased [None]
  - Metabolic acidosis [None]
  - Haemodialysis [None]
  - Aspartate aminotransferase increased [None]
  - Acute generalised exanthematous pustulosis [None]
  - Septic shock [None]
  - Alanine aminotransferase increased [None]
  - Drug hypersensitivity [None]
